FAERS Safety Report 13254135 (Version 1)
Quarter: 2017Q1

REPORT INFORMATION
  Report Type: Report from Study
  Country: None (occurrence: US)
  Receive Date: 20170221
  Receipt Date: 20170221
  Transmission Date: 20170428
  Serious: Yes (Hospitalization, Other)
  Sender: FDA-Public Use
  Company Number: US-ABBVIE-16K-163-1820194-00

PATIENT
  Age: 35 Year
  Sex: Female
  Weight: 56.75 kg

DRUGS (3)
  1. HUMIRA [Suspect]
     Active Substance: ADALIMUMAB
     Route: 058
     Dates: start: 2016
  2. PNV [Concomitant]
     Indication: PRODUCT USED FOR UNKNOWN INDICATION
  3. HUMIRA [Suspect]
     Active Substance: ADALIMUMAB
     Indication: PSORIASIS
     Route: 058
     Dates: start: 2012, end: 2014

REACTIONS (8)
  - Exposure during pregnancy [Unknown]
  - Gastroenteritis viral [Recovered/Resolved]
  - Loss of consciousness [Recovered/Resolved]
  - Live birth [Unknown]
  - Uterine contractions abnormal [Recovered/Resolved]
  - Endometriosis [Unknown]
  - Umbilical hernia [Recovered/Resolved]
  - Uterine spasm [Unknown]

NARRATIVE: CASE EVENT DATE: 201412
